FAERS Safety Report 5529423-4 (Version None)
Quarter: 2007Q4

REPORT INFORMATION
  Report Type: 
  Country: None (occurrence: None)
  Receive Date: 20071129
  Receipt Date: 20071121
  Transmission Date: 20080405
  Serious: Yes (Other)
  Sender: FDA-Public Use
  Company Number: MX-ROCHE-533260

PATIENT
  Age: 30 Year
  Sex: Female
  Weight: 53 kg

DRUGS (1)
  1. BONIVA [Suspect]
     Indication: OSTEOPENIA
     Route: 048
     Dates: start: 20070704, end: 20070817

REACTIONS (1)
  - ABORTION SPONTANEOUS [None]
